FAERS Safety Report 19788759 (Version 4)
Quarter: 2021Q3

REPORT INFORMATION
  Report Type: Spontaneous
  Country: JP (occurrence: JP)
  Receive Date: 20210904
  Receipt Date: 20210923
  Transmission Date: 20211014
  Serious: Yes (Hospitalization, Other)
  Sender: FDA-Public Use
  Company Number: JP-009507513-2109JPN000988

PATIENT
  Age: 86 Year
  Sex: Male
  Weight: 50.2 kg

DRUGS (10)
  1. TIAPRIDE [Suspect]
     Active Substance: TIAPRIDE
     Dosage: 50 MG, Q12H
     Route: 048
  2. BICALUTAMIDE. [Concomitant]
     Active Substance: BICALUTAMIDE
     Dosage: 80 MG, EVERYDAY
     Route: 048
  3. AZULENE?GLUTAMINE [Concomitant]
     Active Substance: GLUTAMINE\SODIUM GUALENATE
     Dosage: 3 G, Q8H
     Route: 048
  4. ASPIRINE [Concomitant]
     Active Substance: ASPIRIN
     Indication: ATRIAL FIBRILLATION
  5. GLIMEPIRIDE. [Suspect]
     Active Substance: GLIMEPIRIDE
     Dosage: 0.5 MG, EVERYDAY
     Route: 048
  6. PITAVASTATIN CA [Concomitant]
     Active Substance: PITAVASTATIN CALCIUM
     Dosage: 2 MG, EVERYDAY
     Route: 048
  7. ASPIRINE [Concomitant]
     Active Substance: ASPIRIN
     Indication: LACUNAR INFARCTION
     Dosage: UNK (ORAL DRUG UNSPECIFIED FORM)
     Route: 048
  8. APIXABAN [Concomitant]
     Active Substance: APIXABAN
     Indication: ATRIAL FIBRILLATION
     Dosage: 2.5 MG, Q12H
     Route: 048
  9. LANSOPRAZOL [Concomitant]
     Active Substance: LANSOPRAZOLE
     Indication: PROPHYLAXIS
     Dosage: 15 MG, EVERYDAY
     Route: 048
  10. YOKUKANSAN [Concomitant]
     Active Substance: HERBALS
     Dosage: 1 DF, Q8H
     Route: 048

REACTIONS (6)
  - Brain stem haemorrhage [Recovering/Resolving]
  - Overdose [Recovered/Resolved]
  - Renal impairment [Unknown]
  - Hypoglycaemia [Recovered/Resolved]
  - Hypophagia [Recovered/Resolved]
  - Somnolence [Recovering/Resolving]
